FAERS Safety Report 9300861 (Version 4)
Quarter: 2015Q3

REPORT INFORMATION
  Report Type: Spontaneous
  Country: US (occurrence: US)
  Receive Date: 20130521
  Receipt Date: 20150721
  Transmission Date: 20151125
  Serious: Yes (Life-Threatening, Other)
  Sender: FDA-Public Use
  Company Number: US-GILEAD-2013-0075228

PATIENT
  Age: 54 Year
  Sex: Male

DRUGS (8)
  1. TRILEPTAL [Concomitant]
     Active Substance: OXCARBAZEPINE
     Dosage: 1200 MG, QD
  2. TRUVADA [Suspect]
     Active Substance: EMTRICITABINE\TENOFOVIR DISOPROXIL FUMARATE
     Indication: HIV INFECTION
     Dosage: UNK
     Route: 065
     Dates: start: 20120612, end: 20130510
  3. LUVOX [Concomitant]
     Active Substance: FLUVOXAMINE MALEATE
     Dosage: 300 MG, QD
  4. APAP [Concomitant]
     Active Substance: ACETAMINOPHEN
     Dosage: 3000 MG, QD
  5. PRILOSEC [Concomitant]
     Active Substance: OMEPRAZOLE MAGNESIUM
     Dosage: 20 MG, UNK
  6. NORVASC [Concomitant]
     Active Substance: AMLODIPINE BESYLATE
     Dosage: 10 MG, QD
  7. LIBRIUM [Concomitant]
     Active Substance: CHLORDIAZEPOXIDE HYDROCHLORIDE
     Dosage: 30 MG, QD
  8. DALMANE [Concomitant]
     Active Substance: FLURAZEPAM HYDROCHLORIDE
     Dosage: 30 MG, QD

REACTIONS (13)
  - Blood phosphorus abnormal [Recovered/Resolved]
  - Pain [Not Recovered/Not Resolved]
  - Blood pressure abnormal [Not Recovered/Not Resolved]
  - Malaise [Unknown]
  - Hyperhidrosis [Not Recovered/Not Resolved]
  - Fanconi syndrome acquired [Recovered/Resolved]
  - Blood glucose abnormal [Unknown]
  - Blood pressure increased [Not Recovered/Not Resolved]
  - Pollakiuria [Not Recovered/Not Resolved]
  - Glucose urine present [Recovered/Resolved]
  - Gastric disorder [Unknown]
  - Unevaluable event [Unknown]
  - Myalgia [Not Recovered/Not Resolved]

NARRATIVE: CASE EVENT DATE: 2012
